FAERS Safety Report 5583206-8 (Version None)
Quarter: 2008Q1

REPORT INFORMATION
  Report Type: 
  Country: None (occurrence: None)
  Receive Date: 20080107
  Receipt Date: 20071226
  Transmission Date: 20080703
  Serious: Yes (Hospitalization)
  Sender: FDA-Public Use
  Company Number: FR-SANOFI-SYNTHELABO-A02200704007

PATIENT
  Sex: Female

DRUGS (12)
  1. CALCIPARINE [Concomitant]
     Indication: MYOCARDIAL INFARCTION
     Route: 058
  2. CALCIPARINE [Concomitant]
     Indication: ANGIOPLASTY
     Route: 058
  3. PULMICORT [Suspect]
     Indication: DRUG USE FOR UNKNOWN INDICATION
     Dosage: UNK
     Route: 045
     Dates: start: 20070724, end: 20070730
  4. PRAVASTATIN [Suspect]
     Indication: DRUG USE FOR UNKNOWN INDICATION
     Route: 048
  5. ADANCOR [Suspect]
     Route: 048
  6. MEMANTINE HCL [Suspect]
     Indication: DEMENTIA ALZHEIMER'S TYPE
     Route: 048
  7. CITALOPRAM HYDROBROMIDE [Suspect]
     Indication: MAJOR DEPRESSION
     Route: 048
  8. IZILOX [Suspect]
     Indication: BRONCHITIS
     Route: 048
     Dates: start: 20070724, end: 20070730
  9. SECTRAL [Suspect]
     Route: 048
  10. TRIATEC [Suspect]
     Indication: DRUG USE FOR UNKNOWN INDICATION
     Route: 048
  11. PLAVIX [Suspect]
     Indication: MYOCARDIAL INFARCTION
     Route: 048
  12. PLAVIX [Suspect]
     Indication: ANGIOPLASTY
     Route: 048

REACTIONS (2)
  - LOSS OF CONSCIOUSNESS [None]
  - MALAISE [None]
